FAERS Safety Report 6951725-5 (Version None)
Quarter: 2010Q3

REPORT INFORMATION
  Report Type: 
  Country: None (occurrence: None)
  Receive Date: 20100828
  Receipt Date: 20100407
  Transmission Date: 20110219
  Serious: No
  Sender: FDA-Public Use
  Company Number: US-ABBOTT-10P-163-0637249-00

PATIENT
  Sex: Male
  Weight: 90.8 kg

DRUGS (1)
  1. NIASPAN [Suspect]
     Indication: PRODUCT USED FOR UNKNOWN INDICATION
     Dosage: AT NIGHT
     Dates: start: 20090301

REACTIONS (3)
  - DRUG DISPENSING ERROR [None]
  - FLUSHING [None]
  - WRONG DRUG ADMINISTERED [None]
